FAERS Safety Report 8269366-9 (Version None)
Quarter: 2012Q2

REPORT INFORMATION
  Report Type: 
  Country: None (occurrence: None)
  Receive Date: 20120409
  Receipt Date: 20120328
  Transmission Date: 20120825
  Serious: Yes (Death, Other)
  Sender: FDA-Public Use
  Company Number: US-ROCHE-1057435

PATIENT
  Age: 20 Year
  Sex: Female

DRUGS (2)
  1. ALTEPLASE [Suspect]
     Indication: HEPATIC VEIN THROMBOSIS
     Route: 042
  2. ENOXAPARIN SODIUM [Suspect]
     Indication: ANTICOAGULANT THERAPY

REACTIONS (4)
  - MESENTERIC HAEMORRHAGE [None]
  - DEATH [None]
  - GASTROINTESTINAL OEDEMA [None]
  - SUBDURAL HAEMATOMA [None]
